FAERS Safety Report 14030013 (Version 2)
Quarter: 2017Q4

REPORT INFORMATION
  Report Type: Spontaneous
  Country: FR (occurrence: FR)
  Receive Date: 20171002
  Receipt Date: 20171122
  Transmission Date: 20180321
  Serious: Yes (Other)
  Sender: FDA-Public Use
  Company Number: FR-MERCK KGAA-2028496

PATIENT
  Age: 64 Year
  Sex: Female

DRUGS (2)
  1. ISOBAR [Concomitant]
     Active Substance: METHYCLOTHIAZIDE\TRIAMTERENE
  2. NOVOTHYROX [Suspect]
     Active Substance: LEVOTHYROXINE SODIUM
     Indication: PRODUCT USED FOR UNKNOWN INDICATION
     Route: 048
     Dates: start: 201705, end: 201709

REACTIONS (6)
  - Alopecia [Recovering/Resolving]
  - Abdominal pain [Recovering/Resolving]
  - Asthenia [Recovering/Resolving]
  - Headache [Recovering/Resolving]
  - Muscle spasms [Recovering/Resolving]
  - Blood thyroid stimulating hormone normal [Recovered/Resolved]

NARRATIVE: CASE EVENT DATE: 20170613
